FAERS Safety Report 5574465-6 (Version None)
Quarter: 2007Q4

REPORT INFORMATION
  Report Type: 
  Country: None (occurrence: None)
  Receive Date: 20071226
  Receipt Date: 20071226
  Transmission Date: 20080405
  Serious: Yes (Disabling, Other)
  Sender: FDA-Public Use
  Company Number: None

PATIENT
  Age: 29 Year
  Sex: Female
  Weight: 71.6683 kg

DRUGS (1)
  1. MIRENA [Suspect]
     Indication: CONTRACEPTION
     Dates: start: 20071213, end: 20071226

REACTIONS (5)
  - ALOPECIA [None]
  - HEADACHE [None]
  - MOOD SWINGS [None]
  - PAIN IN EXTREMITY [None]
  - SINUSITIS [None]
